FAERS Safety Report 9636227 (Version 1)
Quarter: 2013Q4

REPORT INFORMATION
  Report Type: Spontaneous
  Country: US (occurrence: US)
  Receive Date: 20131021
  Receipt Date: 20131021
  Transmission Date: 20140711
  Serious: No
  Sender: FDA-Public Use
  Company Number: US-009507513-1310USA007500

PATIENT
  Age: 26 Year
  Sex: Female

DRUGS (4)
  1. NUVARING [Suspect]
     Indication: CONTRACEPTION
     Dosage: 3 WEEKS IN 1 WEEK OUT
     Route: 067
     Dates: start: 201308
  2. PERCOCET [Concomitant]
  3. BACLOFEN [Concomitant]
  4. ATIVAN [Concomitant]

REACTIONS (2)
  - Haemorrhage [Unknown]
  - Incorrect drug administration duration [Unknown]
